FAERS Safety Report 4669085-1 (Version None)
Quarter: 2005Q2

REPORT INFORMATION
  Report Type: 
  Country: None (occurrence: None)
  Receive Date: 20050519
  Receipt Date: 20050509
  Transmission Date: 20051028
  Serious: Yes (Death, Other)
  Sender: FDA-Public Use
  Company Number: 2005066739

PATIENT
  Age: 69 Year
  Sex: Female
  Weight: 100 kg

DRUGS (13)
  1. CELEBREX [Suspect]
     Indication: ARTHRITIS
     Dosage: 400 MG ( 200 MG, 2 IN 1 D), ORAL
     Route: 048
     Dates: start: 20010306, end: 20041117
  2. CELEBREX [Suspect]
     Indication: OSTEOARTHRITIS
     Dosage: 400 MG ( 200 MG, 2 IN 1 D), ORAL
     Route: 048
     Dates: start: 20010306, end: 20041117
  3. VIOXX [Suspect]
     Indication: ARTHRITIS
     Dosage: 50 MG (25 MG, 2 IN 1 D), ORAL
     Route: 048
     Dates: start: 19991109, end: 20010305
  4. VIOXX [Suspect]
     Indication: OSTEOARTHRITIS
     Dosage: 50 MG (25 MG, 2 IN 1 D), ORAL
     Route: 048
     Dates: start: 19991109, end: 20010305
  5. CALCORT (DEFLAZACORT) [Concomitant]
  6. CONDROSULF (CHONDROITIN SULFATE SODIUM) [Concomitant]
  7. BLOPRESS  (ANDESARTAN CILEXETIL) [Concomitant]
  8. ACETAMINOPHEN [Concomitant]
  9. LEXOTANIL (BROMAZEPAM) [Concomitant]
  10. TRAMADOLOR                 (TRAMADOL HYDROCHLORIDE) [Concomitant]
  11. DUSPATALIN ^DUPHAR^ (MEBEVERINE HYDROCHLORIDE) [Concomitant]
  12. IBUPROFEN [Concomitant]
  13. NEURONTIN [Concomitant]

REACTIONS (5)
  - ASTHENIA [None]
  - CARDIO-RESPIRATORY ARREST [None]
  - ELECTROCARDIOGRAM REPOLARISATION ABNORMALITY [None]
  - HEART RATE INCREASED [None]
  - MITRAL VALVE INCOMPETENCE [None]
